FAERS Safety Report 7877838-1 (Version None)
Quarter: 2011Q4

REPORT INFORMATION
  Report Type: 
  Country: None (occurrence: None)
  Receive Date: 20111031
  Receipt Date: 20111031
  Transmission Date: 20120403
  Serious: No
  Sender: FDA-Public Use
  Company Number: None

PATIENT
  Age: 40 Year
  Sex: Female
  Weight: 84.821 kg

DRUGS (1)
  1. PRISTIQ [Suspect]
     Indication: DEPRESSION
     Dosage: 50MG
     Route: 048

REACTIONS (10)
  - WITHDRAWAL SYNDROME [None]
  - VERTIGO [None]
  - ANGER [None]
  - INSOMNIA [None]
  - ABNORMAL BEHAVIOUR [None]
  - IMPAIRED DRIVING ABILITY [None]
  - ANXIETY [None]
  - TREMOR [None]
  - CRYING [None]
  - DEPRESSED MOOD [None]
